FAERS Safety Report 25616566 (Version 1)
Quarter: 2025Q3

REPORT INFORMATION
  Report Type: Spontaneous
  Country: US (occurrence: US)
  Receive Date: 20250729
  Receipt Date: 20250729
  Transmission Date: 20251020
  Serious: Yes (Life-Threatening, Hospitalization)
  Sender: MYLAN
  Company Number: US-MYLANLABS-2025M1063917

PATIENT
  Age: 74 Year
  Sex: Male

DRUGS (16)
  1. EPINEPHRINE [Suspect]
     Active Substance: EPINEPHRINE
     Indication: Hypotension
  2. EPINEPHRINE [Suspect]
     Active Substance: EPINEPHRINE
     Route: 042
  3. EPINEPHRINE [Suspect]
     Active Substance: EPINEPHRINE
     Route: 042
  4. EPINEPHRINE [Suspect]
     Active Substance: EPINEPHRINE
  5. NOREPINEPHRINE [Suspect]
     Active Substance: NOREPINEPHRINE
     Indication: Hypotension
  6. NOREPINEPHRINE [Suspect]
     Active Substance: NOREPINEPHRINE
     Route: 042
  7. NOREPINEPHRINE [Suspect]
     Active Substance: NOREPINEPHRINE
     Route: 042
  8. NOREPINEPHRINE [Suspect]
     Active Substance: NOREPINEPHRINE
  9. HEPARIN [Suspect]
     Active Substance: HEPARIN SODIUM
     Indication: Myocardial infarction
  10. HEPARIN [Suspect]
     Active Substance: HEPARIN SODIUM
     Route: 042
  11. HEPARIN [Suspect]
     Active Substance: HEPARIN SODIUM
     Route: 042
  12. HEPARIN [Suspect]
     Active Substance: HEPARIN SODIUM
  13. ATROPINE [Concomitant]
     Active Substance: ATROPINE
     Indication: Nodal arrhythmia
  14. ATROPINE [Concomitant]
     Active Substance: ATROPINE
     Route: 042
  15. ATROPINE [Concomitant]
     Active Substance: ATROPINE
     Route: 042
  16. ATROPINE [Concomitant]
     Active Substance: ATROPINE

REACTIONS (1)
  - Drug ineffective [Unknown]
